FAERS Safety Report 7410738-X (Version None)
Quarter: 2011Q2

REPORT INFORMATION
  Report Type: 
  Country: None (occurrence: None)
  Receive Date: 20110413
  Receipt Date: 20110406
  Transmission Date: 20111010
  Serious: Yes (Other)
  Sender: FDA-Public Use
  Company Number: FR-BRISTOL-MYERS SQUIBB COMPANY-15658388

PATIENT
  Age: 65 Year
  Sex: Male

DRUGS (3)
  1. SUTENT [Interacting]
     Indication: RENAL CANCER
     Dosage: DOSE INCREASED TO 50MG/D,1ST:18NOV10 TO 16DEC10,2ND:01JAN11 TO 29JAN11
     Route: 048
     Dates: start: 20101118, end: 20110129
  2. COMBIVIR [Concomitant]
     Indication: HIV INFECTION
     Dosage: 1DF=150MG/300MG
  3. SUSTIVA [Suspect]
     Indication: HIV INFECTION
     Dates: start: 20090401, end: 20100201

REACTIONS (1)
  - DRUG INTERACTION [None]
